FAERS Safety Report 8044568-5 (Version None)
Quarter: 2012Q1

REPORT INFORMATION
  Report Type: 
  Country: None (occurrence: None)
  Receive Date: 20120113
  Receipt Date: 20120113
  Transmission Date: 20120608
  Serious: Yes (Other)
  Sender: FDA-Public Use
  Company Number: None

PATIENT
  Age: 19 Year
  Sex: Female
  Weight: 63.502 kg

DRUGS (2)
  1. SOLODYN [Concomitant]
  2. SOLODYN [Suspect]
     Indication: ACNE
     Dosage: 1 TAB
     Route: 048
     Dates: start: 20101122, end: 20110728

REACTIONS (2)
  - HEPATIC ENZYME INCREASED [None]
  - STRESS [None]
